FAERS Safety Report 22350654 (Version 1)
Quarter: 2023Q2

REPORT INFORMATION
  Report Type: Spontaneous
  Country: US (occurrence: None)
  Receive Date: 20230521
  Receipt Date: 20230521
  Transmission Date: 20230721
  Serious: No
  Sender: FDA-Public Use
  Company Number: None

PATIENT
  Age: 67 Year
  Sex: Female
  Weight: 74.25 kg

DRUGS (13)
  1. NEXLETOL [Suspect]
     Active Substance: BEMPEDOIC ACID
     Indication: Low density lipoprotein increased
     Dates: start: 20230120, end: 20230425
  2. IMDUR [Concomitant]
     Active Substance: ISOSORBIDE MONONITRATE
  3. LOPRESSOR [Concomitant]
     Active Substance: METOPROLOL TARTRATE
  4. ZETIA [Concomitant]
     Active Substance: EZETIMIBE
  5. RANEXA [Concomitant]
     Active Substance: RANOLAZINE
  6. inclisirin ventolin [Concomitant]
  7. ADVAIR HFA [Concomitant]
     Active Substance: FLUTICASONE PROPIONATE\SALMETEROL XINAFOATE
  8. diclofenic [Concomitant]
  9. TYLENOL [Concomitant]
     Active Substance: ACETAMINOPHEN
  10. FISH OIL [Concomitant]
     Active Substance: FISH OIL
  11. VITAMIN D NOS [Concomitant]
     Active Substance: VITAMIN D NOS
  12. VITAMIN C [Concomitant]
     Active Substance: ASCORBIC ACID
  13. ZINC [Concomitant]
     Active Substance: ZINC

REACTIONS (3)
  - Gait disturbance [None]
  - Arthralgia [None]
  - Insomnia [None]

NARRATIVE: CASE EVENT DATE: 20230201
